FAERS Safety Report 17305243 (Version 7)
Quarter: 2024Q2

REPORT INFORMATION
  Report Type: Spontaneous
  Country: US (occurrence: US)
  Receive Date: 20200123
  Receipt Date: 20240415
  Transmission Date: 20240716
  Serious: Yes (Other)
  Sender: FDA-Public Use
  Company Number: US-PFIZER INC-2020030146

PATIENT
  Age: 69 Year
  Sex: Female
  Weight: 56.7 kg

DRUGS (2)
  1. XELJANZ [Suspect]
     Active Substance: TOFACITINIB CITRATE
     Indication: Rheumatoid arthritis
     Dosage: 5 MG, 2X/DAY
     Route: 048
     Dates: start: 20200307
  2. XELJANZ [Suspect]
     Active Substance: TOFACITINIB CITRATE
     Indication: Psoriasis

REACTIONS (6)
  - Cataract [Unknown]
  - Brain fog [Unknown]
  - Headache [Unknown]
  - Memory impairment [Unknown]
  - Vitamin D deficiency [Unknown]
  - Nasopharyngitis [Unknown]
